FAERS Safety Report 7350209-2 (Version None)
Quarter: 2011Q1

REPORT INFORMATION
  Report Type: 
  Country: None (occurrence: None)
  Receive Date: 20110314
  Receipt Date: 20110303
  Transmission Date: 20110831
  Serious: Yes (Hospitalization)
  Sender: FDA-Public Use
  Company Number: US-ASTRAZENECA-2010SE18657

PATIENT
  Age: 80 Year
  Sex: Female

DRUGS (1)
  1. TOPROL-XL [Suspect]
     Route: 048

REACTIONS (5)
  - ARTHRITIS [None]
  - HYPOACUSIS [None]
  - ARTERIAL REPAIR [None]
  - FALL [None]
  - BONE PAIN [None]
